FAERS Safety Report 23474547 (Version 1)
Quarter: 2024Q1

REPORT INFORMATION
  Report Type: Report from Study
  Country: US (occurrence: US)
  Receive Date: 20240204
  Receipt Date: 20240204
  Transmission Date: 20240410
  Serious: Yes (Other)
  Sender: FDA-Public Use
  Company Number: US-EXELIXIS-CABO-23063275

PATIENT
  Age: 56 Year
  Sex: Female

DRUGS (2)
  1. CABOMETYX [Suspect]
     Active Substance: CABOZANTINIB S-MALATE
     Indication: Renal cancer
     Dosage: TWO 20 MG TABLETS (40 MG) EVERY OTHER DAY ALTERNATING WITH 1 TABLET (20 MG) ON OPPOSITE DAYS
     Route: 048
     Dates: start: 202101, end: 20230302
  2. LENVIMA [Suspect]
     Active Substance: LENVATINIB
     Indication: Renal cancer
     Dosage: UNK
     Dates: start: 20230405

REACTIONS (5)
  - Malignant neoplasm progression [Unknown]
  - Blister [Recovered/Resolved]
  - Blood pressure increased [Not Recovered/Not Resolved]
  - Dyspnoea [Recovered/Resolved]
  - Inappropriate schedule of product administration [Unknown]

NARRATIVE: CASE EVENT DATE: 20210101
